FAERS Safety Report 7044992-3 (Version None)
Quarter: 2010Q4

REPORT INFORMATION
  Report Type: 
  Country: None (occurrence: None)
  Receive Date: 20101014
  Receipt Date: 20101005
  Transmission Date: 20110411
  Serious: Yes (Hospitalization)
  Sender: FDA-Public Use
  Company Number: GB-NOVOPROD-316015

PATIENT
  Age: 41 Year
  Sex: Female
  Weight: 97.5 kg

DRUGS (5)
  1. VICTOZA [Suspect]
     Indication: PRODUCT USED FOR UNKNOWN INDICATION
     Dosage: UNK
     Route: 058
     Dates: start: 20100422, end: 20100429
  2. LYMECYCLINE [Concomitant]
  3. METFORMIN [Concomitant]
  4. RETIN-A [Concomitant]
  5. SIMVASTATIN [Concomitant]

REACTIONS (3)
  - DRUG TOLERANCE DECREASED [None]
  - HYPERGLYCAEMIA [None]
  - VOMITING [None]
